FAERS Safety Report 6713131-8 (Version None)
Quarter: 2010Q2

REPORT INFORMATION
  Report Type: 
  Country: None (occurrence: None)
  Receive Date: 20100506
  Receipt Date: 20100129
  Transmission Date: 20101027
  Serious: No
  Sender: FDA-Public Use
  Company Number: A0842118A

PATIENT
  Age: 23 Year
  Sex: Female

DRUGS (4)
  1. AMOXIL [Suspect]
     Dosage: 1000MG THREE TIMES PER DAY
     Route: 048
     Dates: start: 20100110, end: 20100101
  2. XANAX [Concomitant]
  3. FLEXERIL [Concomitant]
  4. ESTROSTEP [Concomitant]

REACTIONS (2)
  - DRUG SCREEN FALSE POSITIVE [None]
  - VULVOVAGINAL MYCOTIC INFECTION [None]
